FAERS Safety Report 16106099 (Version 3)
Quarter: 2019Q2

REPORT INFORMATION
  Report Type: Spontaneous
  Country: JP (occurrence: JP)
  Receive Date: 20190322
  Receipt Date: 20190625
  Transmission Date: 20190711
  Serious: Yes (Hospitalization, Other)
  Sender: FDA-Public Use
  Company Number: JP-PFIZER INC-2019118481

PATIENT
  Age: 83 Year
  Sex: Male

DRUGS (10)
  1. LYRICA [Suspect]
     Active Substance: PREGABALIN
     Dosage: UNK
     Dates: start: 201810, end: 2018
  2. TOARASET [Suspect]
     Active Substance: ACETAMINOPHEN\TRAMADOL HYDROCHLORIDE
     Dosage: 3 DF, 2X/DAY
     Route: 048
     Dates: start: 20190121, end: 20190317
  3. TRAMCET [Concomitant]
     Active Substance: ACETAMINOPHEN\TRAMADOL
     Dosage: 4 DF, 2X/DAY
     Route: 048
     Dates: start: 20181126, end: 20181209
  4. NEUROTROPIN [RABBIT VACCINIA EXTRACT] [Concomitant]
     Active Substance: ORYCTOLAGUS CUNICULUS SKIN
     Dosage: 16 IU, 2X/DAY
     Route: 048
     Dates: start: 20181022
  5. LYRICA [Suspect]
     Active Substance: PREGABALIN
     Dosage: 75 MG, 1X/DAY
     Route: 048
     Dates: start: 20181126
  6. SYMPROIC [Suspect]
     Active Substance: NALDEMEDINE
     Dosage: 0.2 MG (1 TABLET), 1X/DAY
     Route: 048
     Dates: start: 20181126, end: 20190317
  7. TRAMCET [Concomitant]
     Active Substance: ACETAMINOPHEN\TRAMADOL
     Dosage: 3 DF, 2X/DAY
     Route: 048
     Dates: start: 20181210, end: 20190120
  8. KETOPROFEN. [Concomitant]
     Active Substance: KETOPROFEN
     Dosage: 2 DF, 1X/DAY
     Route: 061
     Dates: start: 20190121
  9. CYMBALTA [Concomitant]
     Active Substance: DULOXETINE HYDROCHLORIDE
     Dosage: 2 DF, 1X/DAY
     Route: 048
     Dates: start: 20181217
  10. EPERISONE HYDROCHLORIDE [Concomitant]
     Active Substance: EPERISONE HYDROCHLORIDE
     Dosage: 3 DF, 3X/DAY
     Route: 048
     Dates: start: 20181203

REACTIONS (2)
  - Anaemia [Recovering/Resolving]
  - Duodenal ulcer haemorrhage [Recovered/Resolved]

NARRATIVE: CASE EVENT DATE: 20190201
